FAERS Safety Report 17262687 (Version 7)
Quarter: 2020Q4

REPORT INFORMATION
  Report Type: Report from Study
  Country: US (occurrence: US)
  Receive Date: 20200113
  Receipt Date: 20201120
  Transmission Date: 20210113
  Serious: Yes (Other)
  Sender: FDA-Public Use
  Company Number: NVSC2020US005071

PATIENT
  Age: 69 Year
  Sex: Female

DRUGS (3)
  1. ENTRESTO [Suspect]
     Active Substance: SACUBITRIL\VALSARTAN
     Dosage: UNK UNK, BID
     Route: 048
     Dates: start: 20200625
  2. ENTRESTO [Suspect]
     Active Substance: SACUBITRIL\VALSARTAN
     Dosage: 100 MG(49 MG SACUBITRIL/51 MG VALSARTAN), BID
     Route: 048
     Dates: start: 202003
  3. ENTRESTO [Suspect]
     Active Substance: SACUBITRIL\VALSARTAN
     Indication: CARDIAC FAILURE
     Dosage: UNK UNK, BID
     Route: 048
     Dates: start: 201910

REACTIONS (12)
  - Hepatic enzyme increased [Unknown]
  - Thyroid function test abnormal [Not Recovered/Not Resolved]
  - Blood cholesterol abnormal [Not Recovered/Not Resolved]
  - Hypotension [Unknown]
  - Fatigue [Unknown]
  - Weight increased [Unknown]
  - Cough [Unknown]
  - Heart rate increased [Recovering/Resolving]
  - Ejection fraction decreased [Recovering/Resolving]
  - Exercise tolerance decreased [Unknown]
  - Nasopharyngitis [Unknown]
  - Renal impairment [Unknown]

NARRATIVE: CASE EVENT DATE: 2019
